FAERS Safety Report 21471332 (Version 1)
Quarter: 2022Q4

REPORT INFORMATION
  Report Type: Report from Study
  Country: ES (occurrence: ES)
  Receive Date: 20221018
  Receipt Date: 20221018
  Transmission Date: 20230112
  Serious: Yes (Hospitalization)
  Sender: FDA-Public Use
  Company Number: ES-BoehringerIngelheim-2021-BI-131765

PATIENT
  Age: 77 Year
  Sex: Male
  Weight: 68 kg

DRUGS (2)
  1. OFEV [Suspect]
     Active Substance: NINTEDANIB
     Indication: Idiopathic pulmonary fibrosis
     Dosage: 100MG/12H
     Route: 048
     Dates: start: 20210911, end: 202206
  2. OFEV [Suspect]
     Active Substance: NINTEDANIB
     Dosage: (DINNER).
     Route: 048
     Dates: start: 202206

REACTIONS (8)
  - Vocal cord operation [Recovered/Resolved]
  - Aphonia [Recovered/Resolved]
  - Respiratory tract infection [Recovered/Resolved]
  - Post procedural complication [Not Recovered/Not Resolved]
  - Dysphonia [Not Recovered/Not Resolved]
  - Decreased appetite [Not Recovered/Not Resolved]
  - Diarrhoea [Not Recovered/Not Resolved]
  - Weight decreased [Not Recovered/Not Resolved]

NARRATIVE: CASE EVENT DATE: 20211001
